FAERS Safety Report 6317036-6 (Version None)
Quarter: 2009Q3

REPORT INFORMATION
  Report Type: 
  Country: None (occurrence: None)
  Receive Date: 20090820
  Receipt Date: 20090810
  Transmission Date: 20100115
  Serious: Yes (Disabling)
  Sender: FDA-Public Use
  Company Number: NL-AMGEN-US359932

PATIENT
  Age: 56 Year
  Sex: Male
  Weight: 75 kg

DRUGS (11)
  1. ENBREL [Suspect]
     Indication: RHEUMATOID ARTHRITIS
     Route: 065
     Dates: start: 20050630
  2. ASPRO CARDIO [Suspect]
     Indication: PROPHYLAXIS
     Route: 065
     Dates: start: 20040101
  3. METHOTREXATE [Suspect]
     Indication: RHEUMATOID ARTHRITIS
     Route: 065
     Dates: start: 20040101
  4. DICLOFENAC - SLOW RELEASE [Concomitant]
     Route: 065
  5. DILTIAZEM - SLOW RELEASE [Concomitant]
     Route: 065
  6. EZETROL [Concomitant]
     Route: 065
  7. BEZALIP [Concomitant]
     Route: 065
  8. METFORMIN [Concomitant]
     Route: 065
  9. FOLIC ACID [Concomitant]
     Route: 065
  10. CRESTOR [Concomitant]
     Route: 065
  11. OMEPRAZOLE [Concomitant]
     Route: 065

REACTIONS (2)
  - DEAFNESS UNILATERAL [None]
  - TINNITUS [None]
